FAERS Safety Report 7000045-1 (Version None)
Quarter: 2010Q3

REPORT INFORMATION
  Report Type: 
  Country: None (occurrence: None)
  Receive Date: 20100920
  Receipt Date: 20100415
  Transmission Date: 20110219
  Serious: No
  Sender: FDA-Public Use
  Company Number: US-ASTRAZENECA-2010SE16835

PATIENT
  Age: 13 Year
  Sex: Male
  Weight: 88.5 kg

DRUGS (3)
  1. SEROQUEL [Suspect]
     Indication: AGGRESSION
     Route: 048
     Dates: start: 20100301
  2. TRILEPTAL [Concomitant]
  3. INTUNIV [Concomitant]

REACTIONS (6)
  - AFFECT LABILITY [None]
  - AGGRESSION [None]
  - CRYING [None]
  - THIRST [None]
  - THYROXINE DECREASED [None]
  - WEIGHT INCREASED [None]
